FAERS Safety Report 7416930-2 (Version None)
Quarter: 2011Q2

REPORT INFORMATION
  Report Type: 
  Country: None (occurrence: None)
  Receive Date: 20110415
  Receipt Date: 20110404
  Transmission Date: 20111010
  Serious: Yes (Other)
  Sender: FDA-Public Use
  Company Number: GB-JNJFOC-20110202259

PATIENT
  Age: 54 Year
  Sex: Male
  Weight: 49 kg

DRUGS (2)
  1. PARACETAMOL [Suspect]
  2. PARACETAMOL [Suspect]
     Indication: BACK PAIN

REACTIONS (4)
  - LIVER INJURY [None]
  - GLUCOSE TOLERANCE IMPAIRED [None]
  - BLINDNESS [None]
  - OVERDOSE [None]
